FAERS Safety Report 9415416 (Version 1)
Quarter: 2013Q3

REPORT INFORMATION
  Report Type: Spontaneous
  Country: US (occurrence: US)
  Receive Date: 20130723
  Receipt Date: 20130723
  Transmission Date: 20140515
  Serious: No
  Sender: FDA-Public Use
  Company Number: US-PFIZER INC-2013212298

PATIENT
  Age: 31 Year
  Sex: Male
  Weight: 107 kg

DRUGS (1)
  1. ADVIL [Suspect]
     Indication: HEADACHE
     Dosage: TWO CAPSULES, AS NEEDED
     Route: 048
     Dates: start: 201307

REACTIONS (2)
  - Glossodynia [Unknown]
  - Dysgeusia [Unknown]
